FAERS Safety Report 4954502-X (Version None)
Quarter: 2006Q1

REPORT INFORMATION
  Report Type: 
  Country: None (occurrence: None)
  Receive Date: 20060322
  Receipt Date: 20060316
  Transmission Date: 20060701
  Serious: Yes (Death, Hospitalization)
  Sender: FDA-Public Use
  Company Number: 2006JP000599

PATIENT
  Age: 3 Month
  Sex: Male
  Weight: 5.4 kg

DRUGS (18)
  1. PROGRAF [Suspect]
     Indication: BONE MARROW TRANSPLANT
     Dosage: 0.1 MG, UID/QD, IV DRIP
     Route: 041
     Dates: start: 20050209, end: 20050307
  2. METHOTREXATE [Suspect]
     Indication: BONE MARROW TRANSPLANT
     Dosage: 1.25 MG, UID/QD, IV NOS
     Route: 042
     Dates: start: 20050211, end: 20050216
  3. BUSULFAN (BUSULFAN) POWDER [Suspect]
     Indication: BONE MARROW TRANSPLANT
     Dosage: 0.7 MG, QID, ORAL
     Route: 048
     Dates: start: 20050131, end: 20050203
  4. CYCLOPHOSPHAMIDE [Suspect]
     Indication: BONE MARROW TRANSPLANT
     Dosage: 270 MG, UID/QD, IV DRIP
     Route: 042
     Dates: start: 20050205, end: 20050208
  5. FLUDARA [Suspect]
     Indication: BONE MARROW TRANSPLANT
     Dosage: 5.4 MG, UID/QD, IV DRIP
     Route: 042
     Dates: start: 20050131, end: 20050205
  6. ANACT C (PROTEIN C (COAGULATION INHIBITOR) INJECTION [Suspect]
     Indication: PROTEIN C DEFICIENCY
     Dosage: 2500 IU, UID/QD, IV NOS
     Route: 042
     Dates: start: 20050312, end: 20050317
  7. HEPARIN [Concomitant]
  8. URSO (URSODEOXYCHOLIC ACID) TABLET [Concomitant]
  9. G-CSF (GRANULOCYTE COLONY STIMULATING FACTOR) [Concomitant]
  10. NEU-UP (NARTOGRASTIM) INJECTION [Concomitant]
  11. ZOVIRAX [Concomitant]
  12. FIRSTCIN (CEFOZOPRAN HYDROCHLORIDE) INJECTION [Concomitant]
  13. AMIKACIN (AMIKACIN SULFATE) INJECTION [Concomitant]
  14. CARBENIN (BETAMIPRON, PANIPENEM) INJECTION [Concomitant]
  15. NEUART (ANTITHROMBIN III) [Concomitant]
  16. ALBUMIN (ALBUMIN HUMAN) INJECTION [Concomitant]
  17. HAPTOGLOBIN (HUMAN HAPTOGLOBIN) INJECTION [Concomitant]
  18. GAMMAGARD (IMMUNOGLOBULIN HUMAN NORMAL) INJECTION [Concomitant]

REACTIONS (5)
  - GRAFT VERSUS HOST DISEASE [None]
  - KRABBE'S DISEASE [None]
  - PLATELET COUNT DECREASED [None]
  - PULMONARY HAEMORRHAGE [None]
  - VENOOCCLUSIVE LIVER DISEASE [None]
